FAERS Safety Report 23099008 (Version 2)
Quarter: 2023Q4

REPORT INFORMATION
  Report Type: Report from Study
  Country: US (occurrence: US)
  Receive Date: 20231024
  Receipt Date: 20231127
  Transmission Date: 20240109
  Serious: Yes (Other)
  Sender: FDA-Public Use
  Company Number: US-UCBSA-2023050151

PATIENT
  Sex: Female
  Weight: 65.306 kg

DRUGS (3)
  1. BRIVARACETAM [Suspect]
     Active Substance: BRIVARACETAM
     Indication: Seizure
     Dosage: 50 MILLIGRAM, 2X/DAY (BID)
  2. OXCARBAZEPINE [Concomitant]
     Active Substance: OXCARBAZEPINE
     Indication: Seizure
     Dosage: 600/900 MG
  3. ZONISAMIDE [Concomitant]
     Active Substance: ZONISAMIDE
     Indication: Seizure
     Dosage: 400 MILLIGRAM, ONCE DAILY (QD), NIGHTLY

REACTIONS (3)
  - Hallucination, olfactory [Not Recovered/Not Resolved]
  - Deja vu [Not Recovered/Not Resolved]
  - Depression [Not Recovered/Not Resolved]
